FAERS Safety Report 9490944 (Version 7)
Quarter: 2018Q4

REPORT INFORMATION
  Report Type: Spontaneous
  Country: US (occurrence: US)
  Receive Date: 20130830
  Receipt Date: 20181220
  Transmission Date: 20190205
  Serious: No
  Sender: FDA-Public Use
  Company Number: US-PFIZER INC-2013248707

PATIENT
  Age: 33 Year
  Sex: Female

DRUGS (1)
  1. GABAPENTIN. [Suspect]
     Active Substance: GABAPENTIN
     Indication: NEUROPATHY PERIPHERAL
     Dosage: 300 MG, 1X/DAY (1DF QHS)
     Route: 048
     Dates: start: 201110, end: 201110

REACTIONS (7)
  - Drug hypersensitivity [Unknown]
  - Dyspnoea [Unknown]
  - Vomiting [Unknown]
  - Product use in unapproved indication [Unknown]
  - Palpitations [Recovered/Resolved]
  - Nausea [Unknown]
  - Headache [Recovered/Resolved]

NARRATIVE: CASE EVENT DATE: 201110
